FAERS Safety Report 5363397-4 (Version None)
Quarter: 2007Q2

REPORT INFORMATION
  Report Type: 
  Country: None (occurrence: None)
  Receive Date: 20070615
  Receipt Date: 20070608
  Transmission Date: 20071010
  Serious: Yes (Death)
  Sender: FDA-Public Use
  Company Number: 2007SP011567

PATIENT
  Sex: Male

DRUGS (1)
  1. INTERFERON ALFA-2B RECOMBINANT (S-P) (INTERFERON ALFA-2B) [Suspect]
     Indication: LYMPHOMA

REACTIONS (2)
  - PERICARDIAL EFFUSION [None]
  - SPEECH DISORDER [None]
